FAERS Safety Report 5090431-1 (Version None)
Quarter: 2006Q3

REPORT INFORMATION
  Report Type: 
  Country: None (occurrence: None)
  Receive Date: 20060828
  Receipt Date: 20060503
  Transmission Date: 20061208
  Serious: Yes (Hospitalization, Other)
  Sender: FDA-Public Use
  Company Number: US-GLAXOSMITHKLINE-A0604206A

PATIENT
  Age: 21 Year
  Sex: Female

DRUGS (4)
  1. WELLBUTRIN XL [Suspect]
     Indication: DEPRESSION
     Dosage: 300MG PER DAY
     Route: 048
     Dates: start: 20051227, end: 20060217
  2. MICROGESTIN FE [Concomitant]
  3. GABAPENTIN [Concomitant]
  4. VALIUM [Concomitant]

REACTIONS (3)
  - GRAND MAL CONVULSION [None]
  - INSOMNIA [None]
  - POSTICTAL STATE [None]
